FAERS Safety Report 17026943 (Version 1)
Quarter: 2019Q4

REPORT INFORMATION
  Report Type: Spontaneous
  Country: US (occurrence: US)
  Receive Date: 20191112
  Receipt Date: 20191112
  Transmission Date: 20200122
  Serious: Yes (Hospitalization)
  Sender: FDA-Public Use
  Company Number: None

PATIENT
  Age: 48 Year
  Sex: Female

DRUGS (11)
  1. APAP/CODIENE TAB 300-30 MG [Concomitant]
  2. DULOXETINE CAP 30 MG [Concomitant]
  3. ONDANSETRON TAB 4 MG ODT [Concomitant]
  4. METHOCARBAM TAB 750 MG [Concomitant]
  5. ENBREL [Suspect]
     Active Substance: ETANERCEPT
     Indication: PRODUCT USED FOR UNKNOWN INDICATION
     Dosage: ?          OTHER FREQUENCY:EVERY 7 DAYS;?
     Route: 058
     Dates: start: 20180122
  6. BUDESONIDE CAP 3 MG DR [Concomitant]
  7. DIVALPROEX TAB 500 MG ER [Concomitant]
  8. HYDROCO/APAP TAB 7.5-325 [Concomitant]
  9. CIPROFLOXACIN TAB 500 MG [Concomitant]
     Active Substance: CIPROFLOXACIN
  10. AMLODIPINE TAB 10 MG [Concomitant]
  11. DICYCLOMINE CAP 10 MG [Concomitant]

REACTIONS (2)
  - Therapy cessation [None]
  - Neck surgery [None]
